FAERS Safety Report 11186001 (Version 1)
Quarter: 2015Q2

REPORT INFORMATION
  Report Type: Spontaneous
  Country: US (occurrence: US)
  Receive Date: 20150612
  Receipt Date: 20150612
  Transmission Date: 20150821
  Serious: No
  Sender: FDA-Public Use
  Company Number: US-ASTRAZENECA-2015SE54295

PATIENT
  Age: 609 Month
  Sex: Male

DRUGS (5)
  1. HUMULOG [Concomitant]
     Indication: DIABETES MELLITUS
     Route: 058
     Dates: start: 20130815
  2. GENERIC AMBIEN [Concomitant]
     Indication: SLEEP DISORDER
     Route: 048
     Dates: start: 20150414
  3. SEROQUEL XR [Suspect]
     Active Substance: QUETIAPINE FUMARATE
     Indication: ATTENTION DEFICIT/HYPERACTIVITY DISORDER
     Route: 048
     Dates: start: 20131008
  4. FLUOXETINE [Concomitant]
     Active Substance: FLUOXETINE\FLUOXETINE HYDROCHLORIDE
     Route: 048
     Dates: start: 20131001
  5. CLONAZEPAM. [Concomitant]
     Active Substance: CLONAZEPAM
     Indication: SLEEP DISORDER
     Route: 048
     Dates: start: 20131030

REACTIONS (4)
  - Disease recurrence [Unknown]
  - Drug ineffective for unapproved indication [Unknown]
  - Diabetes mellitus [Unknown]
  - Off label use [Unknown]

NARRATIVE: CASE EVENT DATE: 20131008
